FAERS Safety Report 5486965-8 (Version None)
Quarter: 2007Q3

REPORT INFORMATION
  Report Type: 
  Country: None (occurrence: None)
  Receive Date: 20070925
  Receipt Date: 20070522
  Transmission Date: 20080115
  Serious: No
  Sender: FDA-Public Use
  Company Number: 2007US001240

PATIENT
  Age: 88 Year
  Sex: Male

DRUGS (4)
  1. VESICARE [Suspect]
     Indication: PROSTATE EXAMINATION ABNORMAL
     Dosage: 5MG
     Dates: start: 20070422
  2. PROSCAR [Concomitant]
  3. CARDURA [Concomitant]
  4. ELMIRON [Concomitant]

REACTIONS (2)
  - DRUG INEFFECTIVE [None]
  - DYSURIA [None]
